FAERS Safety Report 5610379-0 (Version None)
Quarter: 2008Q1

REPORT INFORMATION
  Report Type: 
  Country: None (occurrence: None)
  Receive Date: 20080128
  Receipt Date: 20080121
  Transmission Date: 20080703
  Serious: Yes (Other)
  Sender: FDA-Public Use
  Company Number: 2008US000275

PATIENT
  Age: 57 Year
  Sex: Male

DRUGS (1)
  1. PROGRAF [Suspect]
     Indication: LIVER TRANSPLANT

REACTIONS (5)
  - CYTOMEGALOVIRUS CHORIORETINITIS [None]
  - DIARRHOEA HAEMORRHAGIC [None]
  - EOSINOPHILIA [None]
  - SCHISTOSOMIASIS [None]
  - THROMBOCYTOPENIA [None]
